FAERS Safety Report 7175901-4 (Version None)
Quarter: 2010Q4

REPORT INFORMATION
  Report Type: 
  Country: None (occurrence: None)
  Receive Date: 20101220
  Receipt Date: 20100610
  Transmission Date: 20110411
  Serious: Yes (Other)
  Sender: FDA-Public Use
  Company Number: US-AMGEN-QUU401983

PATIENT

DRUGS (2)
  1. ENBREL [Suspect]
     Indication: PSORIASIS
     Dosage: 50 MG, 2 TIMES/WK
  2. INFLIXIMAB [Suspect]

REACTIONS (3)
  - DRUG INEFFECTIVE [None]
  - OSTEOMYELITIS [None]
  - WEIGHT INCREASED [None]
